FAERS Safety Report 11877622 (Version 1)
Quarter: 2015Q4

REPORT INFORMATION
  Report Type: Other
  Country: IT (occurrence: IT)
  Receive Date: 20151230
  Receipt Date: 20151230
  Transmission Date: 20160305
  Serious: Yes (Other)
  Sender: FDA-Public Use
  Company Number: IT-MYLANLABS-2015M1046598

PATIENT

DRUGS (1)
  1. MIRTAZAPINE. [Suspect]
     Active Substance: MIRTAZAPINE
     Indication: PSYCHOMOTOR HYPERACTIVITY
     Dosage: 15 MG, QD
     Route: 048
     Dates: start: 20151207

REACTIONS (8)
  - Abnormal behaviour [Unknown]
  - Asthenia [Unknown]
  - Dry mouth [Unknown]
  - Condition aggravated [Unknown]
  - Malaise [Unknown]
  - Confusional state [Unknown]
  - Productive cough [Unknown]
  - Hypertension [Unknown]

NARRATIVE: CASE EVENT DATE: 20151207
